FAERS Safety Report 4977485-5 (Version None)
Quarter: 2006Q2

REPORT INFORMATION
  Report Type: 
  Country: None (occurrence: None)
  Receive Date: 20060418
  Receipt Date: 20060418
  Transmission Date: 20061013
  Serious: No
  Sender: FDA-Public Use
  Company Number: None

PATIENT
  Age: 29 Year
  Sex: Female
  Weight: 68.0396 kg

DRUGS (1)
  1. TUBERSOL [Suspect]
     Dosage: 0.1 ML YEARLY INTRADERMALLY
     Route: 023
     Dates: start: 20060315

REACTIONS (2)
  - PRURITUS [None]
  - URTICARIA [None]
